FAERS Safety Report 12131638 (Version 1)
Quarter: 2016Q1

REPORT INFORMATION
  Report Type: Spontaneous
  Country: US (occurrence: None)
  Receive Date: 20160229
  Receipt Date: 20160229
  Transmission Date: 20160526
  Serious: Yes (Disabling)
  Sender: FDA-Public Use
  Company Number: None

PATIENT
  Age: 81 Year
  Sex: Male
  Weight: 93.9 kg

DRUGS (9)
  1. ATORVASTATIN [Concomitant]
     Active Substance: ATORVASTATIN
  2. AMLODIPINE [Concomitant]
     Active Substance: AMLODIPINE BESYLATE
  3. FISH OIL [Concomitant]
     Active Substance: FISH OIL
  4. SYNTHROID [Concomitant]
     Active Substance: LEVOTHYROXINE SODIUM
  5. LEVOFLOXACIN 500MG DR. REDDY^S LAB [Suspect]
     Active Substance: LEVOFLOXACIN
     Indication: PNEUMONIA
     Dosage: 1 TABLET PER DAY ONCE DAILY TAKEN BY MOUTH
     Route: 048
     Dates: start: 20160128, end: 20160205
  6. SPIRIVA [Concomitant]
     Active Substance: TIOTROPIUM BROMIDE MONOHYDRATE
  7. COENZYME Q10 [Concomitant]
     Active Substance: UBIDECARENONE
  8. CENTRUM MULTIVITAMINS [Concomitant]
     Active Substance: VITAMINS
  9. SYMBICORT [Concomitant]
     Active Substance: BUDESONIDE\FORMOTEROL FUMARATE DIHYDRATE

REACTIONS (3)
  - Tendon pain [None]
  - Joint range of motion decreased [None]
  - Pain [None]

NARRATIVE: CASE EVENT DATE: 20160201
